FAERS Safety Report 4964726-3 (Version None)
Quarter: 2006Q2

REPORT INFORMATION
  Report Type: 
  Country: None (occurrence: None)
  Receive Date: 20060406
  Receipt Date: 20050204
  Transmission Date: 20061013
  Serious: Yes (Death, Hospitalization, Disabling)
  Sender: FDA-Public Use
  Company Number: US-MERCK-0502USA00661

PATIENT
  Age: 56 Year
  Sex: Male
  Weight: 100 kg

DRUGS (6)
  1. VIOXX [Suspect]
     Indication: ARTHRITIS
     Route: 048
     Dates: start: 19990101, end: 20041001
  2. VIOXX [Suspect]
     Route: 048
  3. VIOXX [Suspect]
     Route: 048
  4. ASPIRIN [Concomitant]
     Route: 065
     Dates: start: 20000101
  5. MECLIZINE [Concomitant]
     Route: 065
  6. TOPAMAX [Suspect]
     Route: 065

REACTIONS (38)
  - ABNORMAL DREAMS [None]
  - ACUTE MYOCARDIAL INFARCTION [None]
  - ANGER [None]
  - ANGINA UNSTABLE [None]
  - ANXIETY [None]
  - AORTIC ANEURYSM [None]
  - ARTERIOSCLEROSIS CORONARY ARTERY [None]
  - ASTHMA [None]
  - BRONCHITIS [None]
  - BRONCHITIS ACUTE [None]
  - CARDIAC FAILURE CONGESTIVE [None]
  - CAROTID ARTERY STENOSIS [None]
  - CEREBELLAR INFARCTION [None]
  - CORONARY ARTERY DISEASE [None]
  - DEATH [None]
  - DEPRESSION [None]
  - DIABETES MELLITUS NON-INSULIN-DEPENDENT [None]
  - DIARRHOEA [None]
  - DIVERTICULUM [None]
  - DYSPNOEA [None]
  - EMOTIONAL DISTRESS [None]
  - ERECTILE DYSFUNCTION [None]
  - GASTROOESOPHAGEAL REFLUX DISEASE [None]
  - HAEMATURIA [None]
  - HEADACHE [None]
  - HYPERCHOLESTEROLAEMIA [None]
  - HYPERKALAEMIA [None]
  - HYPERLIPIDAEMIA [None]
  - INSOMNIA [None]
  - INTERMITTENT CLAUDICATION [None]
  - MOOD SWINGS [None]
  - MYOCARDIAL INFARCTION [None]
  - NECK INJURY [None]
  - NERVOUSNESS [None]
  - OEDEMA PERIPHERAL [None]
  - PNEUMONIA [None]
  - ROAD TRAFFIC ACCIDENT [None]
  - VENTRICULAR EXTRASYSTOLES [None]
